FAERS Safety Report 9433344 (Version 2)
Quarter: 2014Q1

REPORT INFORMATION
  Report Type: Spontaneous
  Country: JP (occurrence: JP)
  Receive Date: 20130731
  Receipt Date: 20140304
  Transmission Date: 20141002
  Serious: Yes (Hospitalization)
  Sender: FDA-Public Use
  Company Number: PHHY2013JP078714

PATIENT
  Age: 30 Year
  Sex: Male

DRUGS (13)
  1. VALPROIC ACID [Suspect]
     Indication: ASPERGER^S DISORDER
     Dosage: 800 MG PER DAY
  2. LEVOFLOXACIN [Interacting]
     Indication: URINARY TRACT INFECTION
     Dosage: 900 MG PER DAY
  3. WARFARIN [Interacting]
     Indication: CONGESTIVE CARDIOMYOPATHY
     Dosage: 4 MG PER DAY
  4. ALLOPURINOL [Suspect]
     Indication: HYPERURICAEMIA
     Dosage: 900 MG PER DAY
  5. ASPIRIN [Concomitant]
     Dosage: 100 MG PER DAY
  6. DIGOXIN [Concomitant]
     Dosage: 0.25 MG PER DAY
  7. PIMOBENDAN [Concomitant]
     Dosage: 20 MG PER DAY
  8. ATENOLOL [Concomitant]
     Dosage: 50 MG PER DAY
  9. GLIMEPIRIDE [Concomitant]
     Indication: DIABETES MELLITUS
     Dosage: 4 MG PER DAY
  10. VOGLIBOSE [Concomitant]
     Indication: DIABETES MELLITUS
     Dosage: 2.7 MG PER DAY
  11. MILNACIPRAN HYDROCHLORIDE [Concomitant]
     Dosage: 25 MG PER DAY
  12. FLUVOXAMINE MALEATE [Concomitant]
     Dosage: 200 MG PER DAY
  13. RISPERIDONE [Concomitant]
     Dosage: 2 MG PER DAY

REACTIONS (14)
  - Hypovolaemic shock [Unknown]
  - Epistaxis [Unknown]
  - Renal failure acute [Recovered/Resolved]
  - Haemorrhage urinary tract [Recovered/Resolved]
  - Haematuria [Recovered/Resolved]
  - Anaemia [Unknown]
  - Urinary tract infection [Unknown]
  - Coagulopathy [Unknown]
  - Prothrombin level abnormal [Recovering/Resolving]
  - Blood creatinine increased [Unknown]
  - Blood potassium increased [Unknown]
  - Blood urea increased [Unknown]
  - Haematoma [Unknown]
  - Drug interaction [Unknown]
